FAERS Safety Report 23605330 (Version 8)
Quarter: 2024Q2

REPORT INFORMATION
  Report Type: Spontaneous
  Country: US (occurrence: US)
  Receive Date: 20240307
  Receipt Date: 20240517
  Transmission Date: 20240716
  Serious: No
  Sender: FDA-Public Use
  Company Number: US-PFIZER INC-202400047777

PATIENT
  Age: 12 Year
  Sex: Male
  Weight: 38.549 kg

DRUGS (3)
  1. GENOTROPIN [Suspect]
     Active Substance: SOMATROPIN
     Dosage: 1.6 MG
     Dates: start: 20240201
  2. GENOTROPIN [Suspect]
     Active Substance: SOMATROPIN
     Dosage: UNK
  3. GENOTROPIN [Suspect]
     Active Substance: SOMATROPIN
     Dosage: UNK

REACTIONS (2)
  - Drug dose omission by device [Unknown]
  - Device leakage [Unknown]
